FAERS Safety Report 14161012 (Version 4)
Quarter: 2018Q1

REPORT INFORMATION
  Report Type: Report from Study
  Country: JP (occurrence: JP)
  Receive Date: 20171106
  Receipt Date: 20180308
  Transmission Date: 20180508
  Serious: Yes (Hospitalization, Other)
  Sender: FDA-Public Use
  Company Number: JP-JNJFOC-20170824410

PATIENT
  Age: 73 Year
  Sex: Male
  Weight: 51 kg

DRUGS (3)
  1. IMBRUVICA [Suspect]
     Active Substance: IBRUTINIB
     Indication: CHRONIC LYMPHOCYTIC LEUKAEMIA RECURRENT
     Route: 048
     Dates: start: 20160531, end: 20160729
  2. FEBURIC [Concomitant]
     Active Substance: FEBUXOSTAT
     Indication: PROPHYLAXIS
     Route: 065
     Dates: start: 20160530
  3. IMBRUVICA [Suspect]
     Active Substance: IBRUTINIB
     Indication: CHRONIC LYMPHOCYTIC LEUKAEMIA RECURRENT
     Route: 048
     Dates: start: 20160809, end: 20171025

REACTIONS (7)
  - Haemorrhage [Not Recovered/Not Resolved]
  - Pneumonia [Recovering/Resolving]
  - Bronchitis [Recovering/Resolving]
  - Purpura [Recovering/Resolving]
  - Neutropenia [Recovered/Resolved]
  - Haematuria [Recovering/Resolving]
  - Lymphocyte count increased [Unknown]

NARRATIVE: CASE EVENT DATE: 20160601
